FAERS Safety Report 18344702 (Version 1)
Quarter: 2020Q4

REPORT INFORMATION
  Report Type: Spontaneous
  Country: US (occurrence: US)
  Receive Date: 20201005
  Receipt Date: 20201005
  Transmission Date: 20210114
  Serious: No
  Sender: FDA-Public Use
  Company Number: US-MYLANLABS-2020M1081372

PATIENT
  Sex: Male
  Weight: 68 kg

DRUGS (2)
  1. SCOPOLAMINE TRANSDERMAL SYSTEM [Suspect]
     Active Substance: SCOPOLAMINE
     Indication: MOTION SICKNESS
  2. SCOPOLAMINE TRANSDERMAL SYSTEM [Suspect]
     Active Substance: SCOPOLAMINE
     Indication: MIGRAINE
     Dosage: 1 PATCH/ 3 DAYS
     Route: 062
     Dates: start: 20200804

REACTIONS (2)
  - Product adhesion issue [Recovered/Resolved]
  - Off label use [Unknown]
